FAERS Safety Report 25845096 (Version 4)
Quarter: 2025Q3

REPORT INFORMATION
  Report Type: Spontaneous
  Country: US (occurrence: US)
  Receive Date: 20250925
  Receipt Date: 20250925
  Transmission Date: 20251021
  Serious: Yes (Death, Hospitalization)
  Sender: SIGMA TAU
  Company Number: US-LEADIANT BIOSCIENCES, INC.-2024LBI000226

PATIENT
  Age: 74 Year
  Sex: Male

DRUGS (5)
  1. ABELCET [Suspect]
     Active Substance: AMPHOTERICIN B\DIMYRISTOYLPHOSPHATIDYLCHOLINE, DL-\DIMYRISTOYLPHOSPHATIDYLGLYCEROL, DL-
     Indication: Meningitis cryptococcal
     Route: 065
  2. FLUCONAZOLE [Suspect]
     Active Substance: FLUCONAZOLE
     Indication: Meningitis cryptococcal
     Route: 065
  3. FLUCYTOSINE [Suspect]
     Active Substance: FLUCYTOSINE
     Indication: Meningitis cryptococcal
     Route: 065
  4. CARFILZOMIB [Concomitant]
     Active Substance: CARFILZOMIB
     Indication: Plasma cell myeloma
  5. DEXAMETHASONE [Concomitant]
     Active Substance: DEXAMETHASONE
     Indication: Plasma cell myeloma

REACTIONS (1)
  - Drug ineffective [Fatal]
